FAERS Safety Report 23139970 (Version 3)
Quarter: 2023Q4

REPORT INFORMATION
  Report Type: Report from Study
  Country: KR (occurrence: KR)
  Receive Date: 20231102
  Receipt Date: 20231110
  Transmission Date: 20240109
  Serious: Yes (Death)
  Sender: FDA-Public Use
  Company Number: KR-REGENERON PHARMACEUTICALS, INC.-2023-132273

PATIENT
  Age: 28 Year
  Sex: Female

DRUGS (10)
  1. POZELIMAB [Suspect]
     Active Substance: POZELIMAB
     Indication: Paroxysmal nocturnal haemoglobinuria
     Dosage: 1740 MG, SINGLE, LOADING DOSE
     Route: 042
     Dates: start: 20231026, end: 20231026
  2. POZELIMAB [Suspect]
     Active Substance: POZELIMAB
     Dosage: 400 MG, Q4W, MAINTENANCE DOSE
     Route: 058
     Dates: start: 20231026, end: 20231026
  3. CEMDISIRAN [Suspect]
     Active Substance: CEMDISIRAN
     Indication: Paroxysmal nocturnal haemoglobinuria
     Dosage: 200 MG, Q4W, MAINTENANCE DOSE
     Route: 058
     Dates: start: 20231026, end: 20231026
  4. ACETYLCYSTEINE [Concomitant]
     Active Substance: ACETYLCYSTEINE
     Indication: Cough
     Dosage: ORAL200 MG, TID
     Route: 048
     Dates: start: 20230926, end: 20230928
  5. BEPOSTARBI [Concomitant]
     Indication: Rhinorrhoea
     Dosage: 10 MG, BID
     Route: 048
     Dates: start: 20230926, end: 20230928
  6. CODAEWON S [Concomitant]
     Indication: Rhinorrhoea
     Dosage: 20 ML, TID
     Route: 048
     Dates: start: 20230926, end: 20230928
  7. FERROUS SULFATE [Concomitant]
     Active Substance: FERROUS SULFATE
     Indication: Paroxysmal nocturnal haemoglobinuria
     Dosage: 256 MG, QD
     Route: 048
     Dates: start: 20230912
  8. FOLIC ACID [Concomitant]
     Active Substance: FOLIC ACID
     Indication: Paroxysmal nocturnal haemoglobinuria
     Dosage: 1 MG, QD
     Route: 048
     Dates: start: 20230912
  9. PELUBIPROFEN [Concomitant]
     Active Substance: PELUBIPROFEN
     Indication: Rhinorrhoea
     Dosage: 45 MG, TID
     Route: 048
     Dates: start: 20230926, end: 20230928
  10. PREDNISOLONE [Concomitant]
     Active Substance: PREDNISOLONE
     Indication: Paroxysmal nocturnal haemoglobinuria
     Dosage: 20 MG, AS NECESSARY
     Route: 048
     Dates: start: 20230405

REACTIONS (1)
  - Meningococcal infection [Fatal]

NARRATIVE: CASE EVENT DATE: 20231027
